FAERS Safety Report 9530922 (Version 1)
Quarter: 2013Q3

REPORT INFORMATION
  Report Type: Spontaneous
  Country: FR (occurrence: FR)
  Receive Date: 20130918
  Receipt Date: 20130918
  Transmission Date: 20140515
  Serious: Yes (Hospitalization, Other)
  Sender: FDA-Public Use
  Company Number: FR-JNJFOC-20130909068

PATIENT
  Age: 91 Year
  Sex: Female

DRUGS (10)
  1. XARELTO [Suspect]
     Indication: EMBOLISM VENOUS
     Route: 048
     Dates: start: 20130715, end: 20130729
  2. XARELTO [Suspect]
     Indication: PULMONARY EMBOLISM
     Route: 048
     Dates: start: 20130715, end: 20130729
  3. KARDEGIC [Suspect]
     Indication: PRODUCT USED FOR UNKNOWN INDICATION
     Dosage: 75 MG
     Route: 048
  4. MODOPAR [Concomitant]
     Route: 065
  5. MIANSERIN [Concomitant]
     Route: 065
  6. ZOPICLONE [Concomitant]
     Route: 065
  7. PERINDOPRIL [Concomitant]
     Route: 065
  8. FUROSEMIDE [Concomitant]
     Route: 065
  9. LANTUS [Concomitant]
     Route: 065
  10. PRAVASTATIN [Concomitant]
     Route: 065

REACTIONS (2)
  - Haematoma [Recovered/Resolved with Sequelae]
  - Skin necrosis [Recovered/Resolved with Sequelae]
